FAERS Safety Report 8303891-7 (Version None)
Quarter: 2012Q2

REPORT INFORMATION
  Report Type: 
  Country: None (occurrence: None)
  Receive Date: 20120423
  Receipt Date: 20120418
  Transmission Date: 20120825
  Serious: Yes (Other)
  Sender: FDA-Public Use
  Company Number: PHHY2012AR033142

PATIENT
  Sex: Female

DRUGS (1)
  1. TRILEPTAL [Suspect]
     Indication: CONVULSION
     Dosage: 600 MG DAILY
     Dates: start: 19950101

REACTIONS (5)
  - NECK INJURY [None]
  - DIZZINESS [None]
  - VOMITING [None]
  - GASTROENTERITIS VIRAL [None]
  - CEREBROVASCULAR ACCIDENT [None]
